FAERS Safety Report 12252027 (Version 2)
Quarter: 2016Q2

REPORT INFORMATION
  Report Type: Spontaneous
  Country: TR (occurrence: TR)
  Receive Date: 20160411
  Receipt Date: 20160609
  Transmission Date: 20160815
  Serious: Yes (Hospitalization, Other)
  Sender: FDA-Public Use
  Company Number: TR-ACCORD-039474

PATIENT
  Age: 36 Year
  Sex: Male

DRUGS (1)
  1. QUETIAPINE. [Suspect]
     Active Substance: QUETIAPINE
     Indication: BIPOLAR DISORDER
     Dosage: QUETIAPINE THAN 200 MG/D IN SECOND DAY, THAN 400 MG/D IN THIRD DAY.

REACTIONS (1)
  - Angioedema [Recovered/Resolved]
